FAERS Safety Report 9358338 (Version 2)
Quarter: 2013Q3

REPORT INFORMATION
  Report Type: Spontaneous
  Country: GB (occurrence: GB)
  Receive Date: 20130620
  Receipt Date: 20130802
  Transmission Date: 20140515
  Serious: Yes (Other)
  Sender: FDA-Public Use
  Company Number: GB-JNJFOC-20130609330

PATIENT
  Sex: Female
  Weight: 100 kg

DRUGS (6)
  1. SIMPONI [Suspect]
     Indication: PSORIATIC ARTHROPATHY
     Route: 058
     Dates: start: 20110920
  2. SIMPONI [Suspect]
     Indication: PSORIATIC ARTHROPATHY
     Dosage: APPROXIMATELY COMPLETED 22 INFUSIONS.
     Route: 058
     Dates: start: 20130525
  3. PARACETAMOL [Concomitant]
     Route: 065
  4. FLUOXETINE [Concomitant]
     Route: 065
     Dates: start: 20130106
  5. ZOLMITRIPTAN [Concomitant]
     Route: 065
  6. ESTROGEL [Concomitant]
     Route: 065

REACTIONS (3)
  - Pertussis [Recovered/Resolved]
  - Urinary tract infection [Recovered/Resolved]
  - Cystitis [Recovering/Resolving]
